FAERS Safety Report 22273550 (Version 1)
Quarter: 2023Q2

REPORT INFORMATION
  Report Type: Spontaneous
  Country: BE (occurrence: BE)
  Receive Date: 20230502
  Receipt Date: 20230502
  Transmission Date: 20230721
  Serious: Yes (Other)
  Sender: FDA-Public Use
  Company Number: BE-MYLANLABS-2023M1031574

PATIENT
  Age: 84 Year
  Sex: Male
  Weight: 90 kg

DRUGS (3)
  1. QUETIAPINE FUMARATE [Suspect]
     Active Substance: QUETIAPINE FUMARATE
     Indication: Insomnia
     Dosage: 25 MILLIGRAM, IN THE EVENNING
     Route: 065
  2. QUETIAPINE FUMARATE [Suspect]
     Active Substance: QUETIAPINE FUMARATE
     Dosage: (1 IN EVENING AT BEGINNING, THEN SWITCHED TO 1/2, SINCE FEBRUARY)
     Route: 065
  3. ALPRAZOLAM [Concomitant]
     Active Substance: ALPRAZOLAM
     Dosage: UNK (START DATE: JAN-2023)
     Route: 065

REACTIONS (3)
  - Urinary retention [Recovered/Resolved]
  - Benign prostatic hyperplasia [Unknown]
  - Off label use [Unknown]

NARRATIVE: CASE EVENT DATE: 20221101
